FAERS Safety Report 5351908-4 (Version None)
Quarter: 2007Q2

REPORT INFORMATION
  Report Type: 
  Country: None (occurrence: None)
  Receive Date: 20070609
  Receipt Date: 20070531
  Transmission Date: 20071010
  Serious: Yes (Other)
  Sender: FDA-Public Use
  Company Number: IE-ABBOTT-07P-229-0370161-00

PATIENT
  Sex: Female

DRUGS (2)
  1. KLACID FORTE [Suspect]
     Indication: PHARYNGITIS
     Dates: start: 20070505, end: 20070512
  2. KLACID FORTE [Suspect]
     Indication: LOWER RESPIRATORY TRACT INFECTION

REACTIONS (5)
  - AGEUSIA [None]
  - DRY MOUTH [None]
  - DRY THROAT [None]
  - DYSGEUSIA [None]
  - DYSPHAGIA [None]
